FAERS Safety Report 20089260 (Version 1)
Quarter: 2021Q4

REPORT INFORMATION
  Report Type: Spontaneous
  Country: FR (occurrence: FR)
  Receive Date: 20211119
  Receipt Date: 20211119
  Transmission Date: 20220303
  Serious: Yes (Hospitalization)
  Sender: FDA-Public Use
  Company Number: FR-SUN PHARMACEUTICAL INDUSTRIES LTD-2021RR-317394

PATIENT
  Age: 67 Year
  Sex: Female
  Weight: 123 kg

DRUGS (2)
  1. ACETAMINOPHEN [Suspect]
     Active Substance: ACETAMINOPHEN
     Indication: Poisoning deliberate
     Dosage: 18.5 GRAM, SINGLE TAKE
     Route: 048
     Dates: start: 20210404, end: 20210404
  2. TRAMADOL HYDROCHLORIDE [Suspect]
     Active Substance: TRAMADOL HYDROCHLORIDE
     Indication: Poisoning deliberate
     Dosage: 2.1 GRAM, SINGLE TAKE
     Route: 048
     Dates: start: 20210404, end: 20210404

REACTIONS (1)
  - Coma [Recovered/Resolved]

NARRATIVE: CASE EVENT DATE: 20210404
